FAERS Safety Report 24449136 (Version 2)
Quarter: 2024Q4

REPORT INFORMATION
  Report Type: Spontaneous
  Country: GB (occurrence: GB)
  Receive Date: 20241017
  Receipt Date: 20241107
  Transmission Date: 20250115
  Serious: Yes (Congenital Anomaly, Other)
  Sender: AUROBINDO
  Company Number: GB-MHRA-MED-202410041741264190-JYMRP

PATIENT
  Age: 36 Year
  Sex: Female

DRUGS (4)
  1. TOPIRAMATE [Suspect]
     Active Substance: TOPIRAMATE
     Indication: Epilepsy
     Dosage: 200MG IN THE MORNING AND 300MG AT NIGHT
     Route: 065
     Dates: start: 2018
  2. BRIVARACETAM [Concomitant]
     Active Substance: BRIVARACETAM
     Indication: Epilepsy
     Dosage: 50 MILLIGRAM, TWO TIMES A DAY
     Route: 065
     Dates: start: 20240822
  3. FOLIC ACID [Concomitant]
     Active Substance: FOLIC ACID
     Indication: Vitamin supplementation
     Dosage: 5 MILLIGRAM, ONCE A DAY
     Route: 065
  4. LEVETIRACETAM [Concomitant]
     Active Substance: LEVETIRACETAM
     Indication: Epilepsy
     Dosage: UNK
     Route: 065
     Dates: start: 20240424

REACTIONS (2)
  - Unintended pregnancy [Not Recovered/Not Resolved]
  - Maternal exposure during pregnancy [Unknown]
